FAERS Safety Report 11872591 (Version 1)
Quarter: 2015Q4

REPORT INFORMATION
  Report Type: Spontaneous
  Country: AU (occurrence: AU)
  Receive Date: 20151228
  Receipt Date: 20151228
  Transmission Date: 20160305
  Serious: Yes (Hospitalization, Other)
  Sender: FDA-Public Use
  Company Number: AU-NOVOPROD-474671

PATIENT
  Age: 22 Year
  Sex: Male

DRUGS (3)
  1. NOVORAPID [Suspect]
     Active Substance: INSULIN ASPART
     Dosage: 2-5 UNITS DEPENDING ON BLOOD SUGAR LEVELS
     Route: 058
  2. NOVORAPID [Suspect]
     Active Substance: INSULIN ASPART
     Indication: TYPE 1 DIABETES MELLITUS
     Dosage: 2-5 UNITS DEPENDING ON BLOOD SUGAR LEVELS
     Route: 058
     Dates: start: 20140501
  3. NOVORAPID [Suspect]
     Active Substance: INSULIN ASPART
     Dosage: 2-5 UNITS DEPENDING ON BLOOD SUGAR LEVELS
     Route: 058

REACTIONS (4)
  - Product quality issue [Unknown]
  - Hypoglycaemia [Not Recovered/Not Resolved]
  - Hyperglycaemia [Recovered/Resolved]
  - Seizure [Unknown]
